FAERS Safety Report 4885376-3 (Version None)
Quarter: 2005Q4

REPORT INFORMATION
  Report Type: 
  Country: None (occurrence: None)
  Receive Date: 20051222
  Receipt Date: 20050516
  Transmission Date: 20060501
  Serious: No
  Sender: FDA-Public Use
  Company Number: 200504193

PATIENT
  Age: 31 Year
  Sex: Female
  Weight: 61.2356 kg

DRUGS (1)
  1. ELESTAT [Suspect]
     Indication: HYPERSENSITIVITY
     Dosage: 2 DROP BID EYE
     Dates: start: 20050422, end: 20050426

REACTIONS (3)
  - EYE IRRITATION [None]
  - HYPERSENSITIVITY [None]
  - OCULAR HYPERAEMIA [None]
